FAERS Safety Report 15061001 (Version 1)
Quarter: 2018Q2

REPORT INFORMATION
  Report Type: Spontaneous
  Country: US (occurrence: US)
  Receive Date: 20180625
  Receipt Date: 20180625
  Transmission Date: 20180711
  Serious: No
  Sender: FDA-Public Use
  Company Number: US-ROCHE-2009770

PATIENT
  Age: 52 Year
  Sex: Female

DRUGS (2)
  1. EFFEXOR XR [Concomitant]
     Active Substance: VENLAFAXINE HYDROCHLORIDE
     Indication: ANXIETY
     Dosage: TAKE IT AT NIGHT, ONCE A DAY; ONGOING
     Route: 048
  2. CLONAZEPAM. [Suspect]
     Active Substance: CLONAZEPAM
     Indication: INSOMNIA
     Dosage: ONCE A DAY BY , MOUTH, 1/2 TABLET; ONGOING
     Route: 048

REACTIONS (2)
  - Anxiety [Unknown]
  - Tearfulness [Unknown]

NARRATIVE: CASE EVENT DATE: 20170501
